FAERS Safety Report 24612653 (Version 1)
Quarter: 2024Q4

REPORT INFORMATION
  Report Type: Spontaneous
  Country: US (occurrence: US)
  Receive Date: 20241113
  Receipt Date: 20241113
  Transmission Date: 20250114
  Serious: No
  Sender: ELI LILLY AND COMPANY
  Company Number: US-ELI_LILLY_AND_COMPANY-US202410019690

PATIENT
  Age: 53 Year

DRUGS (2)
  1. EBGLYSS [Suspect]
     Active Substance: LEBRIKIZUMAB-LBKZ
     Indication: Product used for unknown indication
     Dosage: UNK UNK, UNKNOWN
     Route: 065
     Dates: start: 20241021
  2. EBGLYSS [Suspect]
     Active Substance: LEBRIKIZUMAB-LBKZ
     Indication: Product used for unknown indication
     Dosage: UNK UNK, UNKNOWN
     Route: 065
     Dates: start: 20241021

REACTIONS (2)
  - Pruritus [Unknown]
  - Rash [Unknown]
